FAERS Safety Report 10155812 (Version 1)
Quarter: 2014Q2

REPORT INFORMATION
  Report Type: Spontaneous
  Country: US (occurrence: US)
  Receive Date: 20140506
  Receipt Date: 20140506
  Transmission Date: 20141212
  Serious: Yes (Hospitalization)
  Sender: FDA-Public Use
  Company Number: PHHY2014US053943

PATIENT
  Age: 62 Year
  Sex: Female

DRUGS (5)
  1. RIFAMPICIN [Suspect]
     Indication: TUBERCULOSIS
     Dosage: 600 MG DAILY
  2. METOPROLOL [Concomitant]
     Indication: HYPERTENSION
  3. ATORVASTATIN [Concomitant]
     Indication: HYPERLIPIDAEMIA
  4. CALCIUM + VITAMIN D [Concomitant]
  5. MULTI-VIT [Concomitant]

REACTIONS (5)
  - Angioedema [Recovered/Resolved]
  - Lip swelling [Recovered/Resolved]
  - Eye swelling [Recovered/Resolved]
  - Rash generalised [Recovered/Resolved]
  - Pruritus [Recovered/Resolved]
